FAERS Safety Report 6020338-4 (Version None)
Quarter: 2008Q4

REPORT INFORMATION
  Report Type: 
  Country: None (occurrence: None)
  Receive Date: 20081223
  Receipt Date: 20081223
  Transmission Date: 20090506
  Serious: Yes (Hospitalization)
  Sender: FDA-Public Use
  Company Number: None

PATIENT
  Age: 11 Year
  Sex: Male
  Weight: 43.0917 kg

DRUGS (1)
  1. NOVOLOG [Suspect]
     Dosage: PER INSULIN PUMP

REACTIONS (2)
  - DIABETIC KETOACIDOSIS [None]
  - DRUG INEFFECTIVE [None]
